FAERS Safety Report 21488885 (Version 1)
Quarter: 2022Q4

REPORT INFORMATION
  Report Type: Spontaneous
  Country: GB (occurrence: GB)
  Receive Date: 20221021
  Receipt Date: 20221021
  Transmission Date: 20230113
  Serious: Yes (Death, Hospitalization)
  Sender: FDA-Public Use
  Company Number: GB-TEVA-2022-GB-2816224

PATIENT
  Age: 8 Decade
  Sex: Female

DRUGS (6)
  1. CYCLOSPORINE [Suspect]
     Active Substance: CYCLOSPORINE
     Indication: Immunosuppressant drug therapy
     Route: 065
  2. ACYCLOVIR [Suspect]
     Active Substance: ACYCLOVIR
     Indication: Herpes simplex
     Route: 051
  3. CIDOFOVIR [Suspect]
     Active Substance: CIDOFOVIR
     Indication: Herpes simplex
     Route: 051
  4. PROBENECID [Suspect]
     Active Substance: PROBENECID
     Indication: Herpes simplex
     Route: 048
  5. FOSCARNET [Suspect]
     Active Substance: FOSCARNET
     Indication: Herpes simplex
     Dosage: FOR SEVERAL WEEKS
     Route: 042
  6. IMIQUIMOD [Concomitant]
     Active Substance: IMIQUIMOD
     Indication: Herpes simplex
     Dosage: ALTERNATE DAY
     Route: 061

REACTIONS (7)
  - Pneumonia [Fatal]
  - Respiratory failure [Fatal]
  - Herpes simplex [Recovering/Resolving]
  - Electrolyte imbalance [Recovered/Resolved]
  - Seizure [Unknown]
  - Drug ineffective [Unknown]
  - Pathogen resistance [Unknown]
